FAERS Safety Report 5471228-7 (Version None)
Quarter: 2007Q3

REPORT INFORMATION
  Report Type: 
  Country: None (occurrence: None)
  Receive Date: 20070925
  Receipt Date: 20070919
  Transmission Date: 20080115
  Serious: Yes (Death, Hospitalization)
  Sender: FDA-Public Use
  Company Number: 163-21880-07090327

PATIENT
  Age: 74 Year
  Sex: Female

DRUGS (6)
  1. REVLIMID [Suspect]
     Indication: MULTIPLE MYELOMA
     Dosage: 10 MG, 1 IN 1 D, ORAL
     Route: 048
     Dates: start: 20070507, end: 20070601
  2. DECADRON [Concomitant]
  3. SYNTHROID [Concomitant]
  4. ISOPTO CARPINE(PILOCARPINE HYDROCHLORIDE) [Concomitant]
  5. REGLAN [Concomitant]
  6. CITALOPRAM HBR(CITALOPRAM HYDROBROMIDE) [Concomitant]

REACTIONS (3)
  - MALIGNANT NEOPLASM PROGRESSION [None]
  - MULTIPLE MYELOMA [None]
  - PANCYTOPENIA [None]
